FAERS Safety Report 24926688 (Version 1)
Quarter: 2025Q1

REPORT INFORMATION
  Report Type: Spontaneous
  Country: CZ (occurrence: CZ)
  Receive Date: 20250205
  Receipt Date: 20250205
  Transmission Date: 20250409
  Serious: Yes (Life-Threatening, Hospitalization, Other)
  Sender: BRISTOL-MYERS SQUIBB COMPANY
  Company Number: None

PATIENT
  Age: 69 Year
  Sex: Male
  Weight: 84 kg

DRUGS (11)
  1. OPDIVO [Suspect]
     Active Substance: NIVOLUMAB
     Indication: Gastric cancer
     Dosage: FLAT DOSE 240MG IN 14 DAY INTERVAL, ADMINISTERED A TOTAL OF 2 CYCLES
     Route: 042
     Dates: start: 20241125, end: 20241209
  2. ASKETON [Concomitant]
     Indication: Nausea
     Dosage: 1-1-1
  3. ZETOVAR [Concomitant]
     Indication: Product used for unknown indication
     Dosage: 10 MG/10 MG, 0-0-1
  4. OXALIPLATIN [Concomitant]
     Active Substance: OXALIPLATIN
     Indication: Gastric cancer
     Dosage: TOTAL OF 2 CYCLES
     Route: 042
     Dates: start: 20241125, end: 20241209
  5. FLUOROURACIL [Concomitant]
     Active Substance: FLUOROURACIL
     Indication: Gastric cancer
     Dosage: (BOLUS 800 MG + 4800 MG CONTINUOUSLY FOR 46 HOURS), TOTAL OF 2 CYCLES
     Route: 042
     Dates: start: 20241125, end: 20241209
  6. LEUCOVORIN [Concomitant]
     Active Substance: LEUCOVORIN\LEUCOVORIN CALCIUM
     Indication: Gastric cancer
     Dosage: TOTAL OF 2 CYCLES
     Route: 042
     Dates: start: 20241125, end: 20241209
  7. METAMIZOLE SODIUM\PITOFENONE HYDROCHLORIDE [Concomitant]
     Active Substance: METAMIZOLE SODIUM\PITOFENONE HYDROCHLORIDE
     Indication: Pain
  8. ALLOPURINOL [Concomitant]
     Active Substance: ALLOPURINOL
     Indication: Product used for unknown indication
     Dosage: 1-0-0
  9. CONTROLOC [Concomitant]
     Active Substance: PANTOPRAZOLE SODIUM
     Indication: Product used for unknown indication
     Dosage: 1-0-0 ON AN EMPTY STOMACH
  10. GRANISETRON HYDROCHLORIDE [Concomitant]
     Active Substance: GRANISETRON HYDROCHLORIDE
     Indication: Nausea
  11. METFORMIN HYDROCHLORIDE [Concomitant]
     Active Substance: METFORMIN HYDROCHLORIDE
     Indication: Product used for unknown indication
     Dosage: 1-1-1

REACTIONS (1)
  - Renal tubular necrosis [Recovering/Resolving]

NARRATIVE: CASE EVENT DATE: 20250106
